FAERS Safety Report 9181231 (Version 1)
Quarter: 2013Q1

REPORT INFORMATION
  Report Type: Spontaneous
  Country: US (occurrence: None)
  Receive Date: 20130320
  Receipt Date: 20130320
  Transmission Date: 20140127
  Serious: Yes (Death, Hospitalization, Other)
  Sender: FDA-Public Use
  Company Number: AXC-2013-000104

PATIENT
  Sex: Female

DRUGS (1)
  1. SCANDISHAKE [Suspect]
     Indication: MEDICAL DIET
     Route: 048

REACTIONS (2)
  - Pneumonia [None]
  - Aspiration [None]
